FAERS Safety Report 23823134 (Version 1)
Quarter: 2024Q2

REPORT INFORMATION
  Report Type: Report from Study
  Country: US (occurrence: US)
  Receive Date: 20240507
  Receipt Date: 20240507
  Transmission Date: 20240716
  Serious: Yes (Other)
  Sender: FDA-Public Use
  Company Number: US-ABBVIE-5743628

PATIENT
  Sex: Female

DRUGS (1)
  1. HUMIRA [Suspect]
     Active Substance: ADALIMUMAB
     Indication: Ankylosing spondylitis
     Dosage: STARTED MEDICATION 4 TO 5 YEARS AGO
     Route: 058
     Dates: start: 2019

REACTIONS (3)
  - Systemic lupus erythematosus [Unknown]
  - Injection site pain [Recovered/Resolved]
  - Hepatic enzyme increased [Unknown]
